FAERS Safety Report 6258175-8 (Version None)
Quarter: 2009Q3

REPORT INFORMATION
  Report Type: 
  Country: None (occurrence: None)
  Receive Date: 20090702
  Receipt Date: 20090702
  Transmission Date: 20100115
  Serious: Yes (Other)
  Sender: FDA-Public Use
  Company Number: None

PATIENT
  Age: 35 Year
  Sex: Male
  Weight: 76.2043 kg

DRUGS (2)
  1. MELOXICAM [Suspect]
     Indication: INTERVERTEBRAL DISC PROTRUSION
     Dosage: 1 TABLET DAILY PO
     Route: 048
     Dates: start: 20090620, end: 20090628
  2. MELOXICAM [Suspect]
     Indication: SCIATICA
     Dosage: 1 TABLET DAILY PO
     Route: 048
     Dates: start: 20090620, end: 20090628

REACTIONS (5)
  - DYSARTHRIA [None]
  - HYPERSOMNIA [None]
  - INTERVERTEBRAL DISC INJURY [None]
  - LOSS OF CONSCIOUSNESS [None]
  - PAIN [None]
